FAERS Safety Report 7009177-5 (Version None)
Quarter: 2010Q3

REPORT INFORMATION
  Report Type: 
  Country: None (occurrence: None)
  Receive Date: 20100923
  Receipt Date: 20100915
  Transmission Date: 20110219
  Serious: Yes (Other)
  Sender: FDA-Public Use
  Company Number: US-JNJFOC-20100905518

PATIENT
  Sex: Female
  Weight: 58.06 kg

DRUGS (2)
  1. ORTHO EVRA [Suspect]
     Indication: CONTRACEPTION
     Route: 062
  2. CYMBALTA [Suspect]
     Indication: DEPRESSION
     Route: 048

REACTIONS (4)
  - DEPRESSION [None]
  - FOOT FRACTURE [None]
  - INTERVERTEBRAL DISC PROTRUSION [None]
  - WEIGHT INCREASED [None]
